FAERS Safety Report 5488585-8 (Version None)
Quarter: 2007Q4

REPORT INFORMATION
  Report Type: 
  Country: None (occurrence: None)
  Receive Date: 20071017
  Receipt Date: 20070510
  Transmission Date: 20080405
  Serious: No
  Sender: FDA-Public Use
  Company Number: A0650914A

PATIENT
  Sex: Male

DRUGS (1)
  1. CEFTIN [Suspect]
     Indication: SPOROTRICHOSIS
     Route: 065

REACTIONS (2)
  - SKIN LESION [None]
  - THERAPEUTIC RESPONSE UNEXPECTED [None]
